FAERS Safety Report 9779144 (Version 3)
Quarter: 2014Q2

REPORT INFORMATION
  Report Type: Spontaneous
  Country: US (occurrence: US)
  Receive Date: 20131223
  Receipt Date: 20140610
  Transmission Date: 20141212
  Serious: Yes (Hospitalization)
  Sender: FDA-Public Use
  Company Number: US-B.I. PHARMACEUTICALS,INC./RIDGEFIELD-2013-BI-43292BP

PATIENT
  Sex: Male
  Weight: 67.13 kg

DRUGS (9)
  1. PRADAXA [Suspect]
     Indication: ATRIAL FIBRILLATION
     Dosage: 300 MG
     Route: 048
     Dates: start: 20111027, end: 20130207
  2. PRADAXA [Suspect]
     Indication: ANTICOAGULANT THERAPY
  3. PLAVIX [Concomitant]
     Dosage: 75 MG
     Route: 048
     Dates: end: 20130207
  4. LISINOPRIL [Concomitant]
     Dosage: 20 MG
     Route: 065
     Dates: start: 2011
  5. HYDROCHIOROTHIAZIDE [Concomitant]
     Dosage: 12.5 MG
     Route: 048
  6. LIPITOR [Concomitant]
     Dosage: 80 MG
     Route: 048
     Dates: start: 2011
  7. DIGOXIN [Concomitant]
     Dosage: 0.125 MG
     Route: 048
     Dates: start: 2011, end: 2013
  8. COREG [Concomitant]
     Dosage: 12.25 MG
     Route: 048
  9. BABY ASPIRIN [Concomitant]
     Dosage: 81 MG
     Route: 048

REACTIONS (3)
  - Gastrointestinal haemorrhage [Recovered/Resolved]
  - Haemorrhagic anaemia [Unknown]
  - Renal failure acute [Unknown]
